FAERS Safety Report 21477649 (Version 1)
Quarter: 2022Q4

REPORT INFORMATION
  Report Type: Spontaneous
  Country: US (occurrence: None)
  Receive Date: 20221018
  Receipt Date: 20221018
  Transmission Date: 20230113
  Serious: Yes (Death)
  Sender: FDA-Public Use
  Company Number: None

PATIENT
  Age: 54 Year
  Sex: Male

DRUGS (3)
  1. COLISTIMETHATE SODIUM [Suspect]
     Active Substance: COLISTIMETHATE SODIUM
     Indication: Cystic fibrosis lung
     Dosage: FREQUENCY : TWICE A DAY;?MIX 1 VIAL WITH 3ML OF STERILE WATER AND NEBULIZE TWICE DAILY CONTINUOUSLY
     Dates: start: 20150325
  2. CREON CAP [Concomitant]
  3. STERILE WATER SDV LF [Concomitant]

REACTIONS (1)
  - Death [None]

NARRATIVE: CASE EVENT DATE: 20221010
